FAERS Safety Report 15585320 (Version 3)
Quarter: 2019Q1

REPORT INFORMATION
  Report Type: Report from Study
  Country: BR (occurrence: BR)
  Receive Date: 20181102
  Receipt Date: 20190116
  Transmission Date: 20190417
  Serious: Yes (Hospitalization, Disabling, Other)
  Sender: FDA-Public Use
  Company Number: PHHY2018BR143975

PATIENT
  Age: 55 Year
  Sex: Female
  Weight: 71.7 kg

DRUGS (1)
  1. COSENTYX [Suspect]
     Active Substance: SECUKINUMAB
     Indication: ANKYLOSING SPONDYLITIS
     Dosage: 150 MG, QMO
     Route: 058
     Dates: start: 20170608

REACTIONS (13)
  - Erythema [Recovering/Resolving]
  - Laryngeal neoplasm [Not Recovered/Not Resolved]
  - Swelling [Recovering/Resolving]
  - Drug ineffective [Recovering/Resolving]
  - Pain [Not Recovered/Not Resolved]
  - Tracheal neoplasm [Not Recovered/Not Resolved]
  - Ankylosing spondylitis [Not Recovered/Not Resolved]
  - Lymphadenopathy [Not Recovered/Not Resolved]
  - Hypokinesia [Recovering/Resolving]
  - Arthralgia [Recovering/Resolving]
  - Malaise [Not Recovered/Not Resolved]
  - Dysphonia [Unknown]
  - Post procedural complication [Unknown]

NARRATIVE: CASE EVENT DATE: 201810
